FAERS Safety Report 6376674-5 (Version None)
Quarter: 2009Q3

REPORT INFORMATION
  Report Type: 
  Country: None (occurrence: None)
  Receive Date: 20090922
  Receipt Date: 20090922
  Transmission Date: 20100115
  Serious: Yes (Other)
  Sender: FDA-Public Use
  Company Number: None

PATIENT
  Age: 39 Year
  Sex: Female
  Weight: 78.9259 kg

DRUGS (1)
  1. TAMIFLU [Suspect]
     Indication: INFLUENZA IMMUNISATION
     Dosage: 1 DAILY PO
     Route: 048
     Dates: start: 20090908, end: 20090917

REACTIONS (7)
  - FATIGUE [None]
  - HANGOVER [None]
  - HEADACHE [None]
  - MALAISE [None]
  - NAUSEA [None]
  - VERTIGO [None]
  - VISION BLURRED [None]
